FAERS Safety Report 4575666-6 (Version None)
Quarter: 2004Q4

REPORT INFORMATION
  Report Type: 
  Country: None (occurrence: None)
  Receive Date: 20041221
  Receipt Date: 20041221
  Transmission Date: 20050328
  Serious: No
  Sender: FDA-Public Use
  Company Number: None

PATIENT
  Age: 18 Month
  Sex: Male

DRUGS (2)
  1. PHENOBARBITAL [Suspect]
     Dosage: LIQUID
  2. POTASSIUM CHLORIDE [Suspect]
     Dosage: LIQUID

REACTIONS (7)
  - ABNORMAL BEHAVIOUR [None]
  - BALANCE DISORDER [None]
  - CRYING [None]
  - DIFFICULTY IN WALKING [None]
  - FATIGUE [None]
  - IRRITABILITY [None]
  - MEDICATION ERROR [None]
